FAERS Safety Report 6236676-6 (Version None)
Quarter: 2009Q2

REPORT INFORMATION
  Report Type: 
  Country: None (occurrence: None)
  Receive Date: 20090619
  Receipt Date: 20090202
  Transmission Date: 20091009
  Serious: Yes (Hospitalization)
  Sender: FDA-Public Use
  Company Number: US-ASTRAZENECA-2009UW03019

PATIENT
  Age: 22775 Day
  Sex: Male

DRUGS (1)
  1. ATACAND HCT [Suspect]
     Route: 048

REACTIONS (3)
  - CHEST PAIN [None]
  - GOUT [None]
  - JOINT SPRAIN [None]
